FAERS Safety Report 9564525 (Version 1)
Quarter: 2013Q3

REPORT INFORMATION
  Report Type: Spontaneous
  Country: US (occurrence: US)
  Receive Date: 20130930
  Receipt Date: 20130930
  Transmission Date: 20140515
  Serious: No
  Sender: FDA-Public Use
  Company Number: US-GLAXOSMITHKLINE-A0998602A

PATIENT
  Sex: Female

DRUGS (1)
  1. LAMICTAL [Suspect]
     Route: 048
     Dates: start: 20120120, end: 20121008

REACTIONS (1)
  - Nausea [Unknown]
